FAERS Safety Report 16514432 (Version 5)
Quarter: 2025Q3

REPORT INFORMATION
  Report Type: Spontaneous
  Country: EU (occurrence: EU)
  Receive Date: 20190702
  Receipt Date: 20250723
  Transmission Date: 20251021
  Serious: Yes (Hospitalization, Other)
  Sender: AUROBINDO
  Company Number: EU-AUROBINDO-AUR-APL-2019-037048

PATIENT
  Age: 39 Year
  Sex: Male

DRUGS (10)
  1. EFAVIRENZ [Suspect]
     Active Substance: EFAVIRENZ
     Indication: HIV infection
     Dosage: 600 MILLIGRAM, ONCE A DAY
     Route: 065
  2. EFAVIRENZ [Suspect]
     Active Substance: EFAVIRENZ
     Indication: HIV test positive
  3. EMTRIVA [Suspect]
     Active Substance: EMTRICITABINE
     Indication: HIV infection
     Dosage: 200 MILLIGRAM, ONCE A DAY
     Route: 065
  4. EMTRIVA [Suspect]
     Active Substance: EMTRICITABINE
     Indication: HIV test positive
  5. TENOFOVIR [Suspect]
     Active Substance: TENOFOVIR
     Indication: HIV infection
     Dosage: 245 MILLIGRAM, ONCE A DAY
     Route: 065
  6. EMTRICITABINE [Suspect]
     Active Substance: EMTRICITABINE
     Indication: HIV infection
     Route: 065
  7. VIREAD [Suspect]
     Active Substance: TENOFOVIR DISOPROXIL FUMARATE
     Indication: HIV infection
     Dosage: 245 MILLIGRAM, ONCE A DAY
     Route: 065
  8. SULFAMETHOXAZOLE\TRIMETHOPRIM [Concomitant]
     Active Substance: SULFAMETHOXAZOLE\TRIMETHOPRIM
     Indication: Pneumocystis jirovecii pneumonia
     Dosage: 1 DOSAGE FORM, FOUR TIMES/DAY
     Route: 065
  9. SULFAMETHOXAZOLE\TRIMETHOPRIM [Concomitant]
     Active Substance: SULFAMETHOXAZOLE\TRIMETHOPRIM
     Route: 065
  10. DICLOXACILLIN [Concomitant]
     Active Substance: DICLOXACILLIN
     Indication: Product used for unknown indication
     Dosage: 1 GRAM, FOUR TIMES/DAY (QID)
     Route: 065

REACTIONS (8)
  - Atypical mycobacterial infection [Recovered/Resolved]
  - Bursitis infective [Recovering/Resolving]
  - Immune reconstitution inflammatory syndrome [Recovering/Resolving]
  - Bursitis [Recovered/Resolved]
  - Scar [Unknown]
  - Arthralgia [Unknown]
  - Depression [Unknown]
  - Post-traumatic stress disorder [Unknown]
